FAERS Safety Report 5108997-1 (Version None)
Quarter: 2006Q3

REPORT INFORMATION
  Report Type: 
  Country: None (occurrence: None)
  Receive Date: 20060918
  Receipt Date: 20060901
  Transmission Date: 20061208
  Serious: Yes (Hospitalization)
  Sender: FDA-Public Use
  Company Number: US200609000674

PATIENT
  Sex: Male

DRUGS (2)
  1. HUMALOG [Suspect]
     Dates: start: 20030101
  2. HUMALOG PEN (HUMALOG PEN) [Concomitant]

REACTIONS (5)
  - DEHYDRATION [None]
  - PHARMACEUTICAL PRODUCT COMPLAINT [None]
  - THERAPEUTIC RESPONSE DECREASED [None]
  - VIRAL INFECTION [None]
  - WRONG TECHNIQUE IN DRUG USAGE PROCESS [None]
